FAERS Safety Report 6024891-6 (Version None)
Quarter: 2008Q4

REPORT INFORMATION
  Report Type: 
  Country: None (occurrence: None)
  Receive Date: 20081230
  Receipt Date: 20081230
  Transmission Date: 20090506
  Serious: Yes (Other)
  Sender: FDA-Public Use
  Company Number: None

PATIENT
  Age: 55 Year
  Sex: Female
  Weight: 90.7194 kg

DRUGS (1)
  1. PHENTERMINE [Suspect]
     Indication: OBESITY
     Dosage: 1 CAPSULE 1 X A DAY
     Dates: start: 20080724, end: 20081224

REACTIONS (4)
  - ANGER [None]
  - ILL-DEFINED DISORDER [None]
  - MALAISE [None]
  - MITRAL VALVE PROLAPSE [None]
